FAERS Safety Report 10059929 (Version 2)
Quarter: 2014Q2

REPORT INFORMATION
  Report Type: Report from Study
  Country: JP (occurrence: JP)
  Receive Date: 20140404
  Receipt Date: 20140404
  Transmission Date: 20141212
  Serious: Yes (Hospitalization, Other)
  Sender: FDA-Public Use
  Company Number: JP-VIIV HEALTHCARE LIMITED-B0113593A

PATIENT
  Age: 32 Year
  Sex: Female
  Weight: 51 kg

DRUGS (3)
  1. ABACAVIR [Suspect]
     Indication: HIV INFECTION
     Dosage: 600MG PER DAY
     Route: 048
     Dates: start: 20010108, end: 20010920
  2. DIDANOSINE [Suspect]
     Indication: HIV INFECTION
     Dosage: 250MGD PER DAY
     Route: 048
     Dates: start: 20010108
  3. STAVUDINE [Suspect]
     Indication: HIV INFECTION
     Dosage: 60MGD PER DAY
     Route: 048
     Dates: start: 20010108

REACTIONS (7)
  - Erythema multiforme [Recovered/Resolved]
  - Pyrexia [Unknown]
  - Pruritus [Unknown]
  - Hypoaesthesia [Unknown]
  - Hepatic function abnormal [Unknown]
  - Aspartate aminotransferase increased [Unknown]
  - Alanine aminotransferase increased [Unknown]
